FAERS Safety Report 5802571-7 (Version None)
Quarter: 2008Q3

REPORT INFORMATION
  Report Type: 
  Country: None (occurrence: None)
  Receive Date: 20080708
  Receipt Date: 20080703
  Transmission Date: 20090109
  Serious: Yes (Death, Other)
  Sender: FDA-Public Use
  Company Number: PHHY2008JP12903

PATIENT

DRUGS (9)
  1. NEORAL [Suspect]
     Indication: MYASTHENIA GRAVIS CRISIS
     Dosage: UNK
     Route: 048
  2. PREDONINE [Suspect]
     Indication: MYASTHENIA GRAVIS
     Dosage: 60 MG, UNK
  3. MESTINON [Concomitant]
     Indication: MYASTHENIA GRAVIS
     Dosage: 180 MG, UNK
  4. FAMOTIDINE [Concomitant]
     Dosage: 40 MG, UNK
  5. BISOLVON [Concomitant]
     Dosage: 12 MG, UNK
  6. ASPIRIN [Concomitant]
     Dosage: 100 MG, UNK
  7. ONEALFA [Concomitant]
  8. MAGNESIUM OXIDE [Concomitant]
  9. PLASMAPHERESIS [Concomitant]

REACTIONS (5)
  - BULBAR PALSY [None]
  - MECHANICAL VENTILATION [None]
  - PYREXIA [None]
  - RESPIRATION ABNORMAL [None]
  - SEPSIS [None]
